FAERS Safety Report 12728431 (Version 1)
Quarter: 2016Q3

REPORT INFORMATION
  Report Type: Spontaneous
  Country: US (occurrence: US)
  Receive Date: 20160907
  Receipt Date: 20160907
  Transmission Date: 20161109
  Serious: Yes (Other)
  Sender: FDA-Public Use
  Company Number: None

PATIENT
  Age: 55 Year
  Sex: Male
  Weight: 92.25 kg

DRUGS (5)
  1. DIOVAN HTZ [Concomitant]
  2. SENIOR MULTI VITAMIN [Concomitant]
  3. FLEXARIL [Concomitant]
  4. LEVOFLOXACIN. [Suspect]
     Active Substance: LEVOFLOXACIN
     Indication: BRONCHITIS
     Dosage: OTHER STRENGTH:;OTHER DOSE:1 TABLET;OTHER FREQUENCY:;OTHER ROUTE:
     Route: 048
     Dates: start: 20160121, end: 20160125
  5. FISH OIL [Concomitant]
     Active Substance: FISH OIL

REACTIONS (6)
  - Pain in extremity [None]
  - Arthralgia [None]
  - Tendon rupture [None]
  - Abasia [None]
  - Musculoskeletal pain [None]
  - Activities of daily living impaired [None]

NARRATIVE: CASE EVENT DATE: 20160126
